FAERS Safety Report 12590471 (Version 2)
Quarter: 2016Q3

REPORT INFORMATION
  Report Type: Spontaneous
  Country: US (occurrence: US)
  Receive Date: 20160725
  Receipt Date: 20160912
  Transmission Date: 20161109
  Serious: No
  Sender: FDA-Public Use
  Company Number: US-ASTRAZENECA-2016SE77246

PATIENT
  Age: 21368 Day
  Sex: Male
  Weight: 102.1 kg

DRUGS (7)
  1. CLARITIN [Concomitant]
     Active Substance: LORATADINE
  2. ERROR [Concomitant]
  3. AMOXICILLIN. [Concomitant]
     Active Substance: AMOXICILLIN
     Dosage: 875 MG. 2 TIMES DAILY
  4. PULMICORT FLEXHALER [Suspect]
     Active Substance: BUDESONIDE
     Indication: HYPERSENSITIVITY
     Dosage: 180 MCG 225 MG 1 PUFF 2 TIMES DAILY
     Route: 055
     Dates: start: 20160506
  5. PULMICORT FLEXHALER [Suspect]
     Active Substance: BUDESONIDE
     Indication: COUGH
     Dosage: 180 MCG 225 MG 1 PUFF 2 TIMES DAILY
     Route: 055
     Dates: start: 20160506
  6. CPAP MACHINE [Concomitant]
     Indication: SLEEP APNOEA SYNDROME
     Route: 055
     Dates: start: 201601
  7. FLUTICASONE [Concomitant]
     Active Substance: FLUTICASONE\FLUTICASONE PROPIONATE
     Dosage: 2 SPRAYS IN EACH NOSTRIL DAILY,
     Route: 045

REACTIONS (8)
  - Bronchitis [Unknown]
  - Product use issue [Unknown]
  - Drug dose omission [Unknown]
  - Device issue [Unknown]
  - Pyrexia [Unknown]
  - Wheezing [Unknown]
  - Drug ineffective [Unknown]
  - Off label use [Unknown]

NARRATIVE: CASE EVENT DATE: 20160506
